FAERS Safety Report 8709808 (Version 2)
Quarter: 2012Q4

REPORT INFORMATION
  Report Type: 
  Country: US (occurrence: US)
  Receive Date: 20120806
  Receipt Date: 20120921
  Transmission Date: 20130627
  Serious: Yes (Life-Threatening, Hospitalization, Other)
  Sender: FDA-Public Use
  Company Number: US-ELI_LILLY_AND_COMPANY-US201207007720

PATIENT
  Age: 13 Year
  Sex: Male

DRUGS (8)
  1. STRATTERA [Suspect]
     Indication: ATTENTION DEFICIT/HYPERACTIVITY DISORDER
     Dosage: 40 mg, qd
     Route: 048
     Dates: start: 20120529
  2. STRATTERA [Suspect]
     Dosage: 25 mg, qd
     Route: 048
     Dates: end: 20120614
  3. WELLBUTRIN [Concomitant]
     Dosage: 100 mg, UNK
  4. ALBUTEROL [Concomitant]
     Dosage: UNK, prn
  5. XYZAL [Concomitant]
  6. SINGULAIR [Concomitant]
  7. QVAR [Concomitant]
  8. FLONASE [Concomitant]

REACTIONS (11)
  - Rhabdomyolysis [Recovered/Resolved]
  - Aspartate aminotransferase increased [Recovered/Resolved]
  - Alanine aminotransferase increased [Recovered/Resolved]
  - Arthropod bite [Unknown]
  - Influenza [Unknown]
  - Influenza [Unknown]
  - Dehydration [Unknown]
  - Diarrhoea [Unknown]
  - Rash [Unknown]
  - Nausea [Unknown]
  - Tachycardia [Recovered/Resolved]
